FAERS Safety Report 9396165 (Version 2)
Quarter: 2013Q3

REPORT INFORMATION
  Report Type: Spontaneous
  Country: IT (occurrence: None)
  Receive Date: 20130708
  Receipt Date: 20130814
  Transmission Date: 20140515
  Serious: Yes (Hospitalization)
  Sender: FDA-Public Use
  Company Number: AUR-APL-2013-05645

PATIENT
  Age: 83 Year
  Sex: Male

DRUGS (7)
  1. CITALOPRAM (CITALOPRAM) [Suspect]
     Indication: DEPRESSION
     Route: 048
     Dates: start: 20100101, end: 20130511
  2. CARDIOASPIRIN (ACETYLSALICYLIC ACID) [Suspect]
     Indication: PROPHYLAXIS
     Dosage: 1 DOSAGE FORMS, 1 D, ORAL
     Route: 048
     Dates: start: 20100101, end: 20130511
  3. ENALAPRIL [Concomitant]
  4. LASIX (FUROSEMIDE) [Concomitant]
  5. SIVASTIN [Concomitant]
  6. OLANZAPINE (OLANZAPINE) [Concomitant]
  7. MIRTAZAPINE (MIRTAZAPINE) [Concomitant]

REACTIONS (2)
  - Subarachnoid haemorrhage [None]
  - Drug interaction [None]
